FAERS Safety Report 9856578 (Version 2)
Quarter: 2014Q1

REPORT INFORMATION
  Report Type: Spontaneous
  Country: US (occurrence: US)
  Receive Date: 20140130
  Receipt Date: 20140130
  Transmission Date: 20141002
  Serious: No
  Sender: FDA-Public Use
  Company Number: US-GILEAD-2013-0074152

PATIENT
  Sex: Male
  Weight: 81.63 kg

DRUGS (6)
  1. COMPLERA [Suspect]
     Indication: HIV INFECTION
     Dosage: UNK
     Dates: start: 201202
  2. CRESTOR [Suspect]
     Indication: HYPERLIPIDAEMIA
     Dosage: UNK
  3. ZOLPIDEM [Concomitant]
     Indication: INSOMNIA
  4. LEXAPRO [Concomitant]
     Indication: DEPRESSION
  5. ANDROGEL [Concomitant]
     Indication: BLOOD TESTOSTERONE DECREASED
  6. FLUTICASONE [Concomitant]
     Indication: RHINITIS ALLERGIC

REACTIONS (2)
  - Bone pain [Not Recovered/Not Resolved]
  - Arthralgia [Not Recovered/Not Resolved]
